FAERS Safety Report 24658188 (Version 1)
Quarter: 2024Q4

REPORT INFORMATION
  Report Type: Spontaneous
  Country: US (occurrence: US)
  Receive Date: 20241125
  Receipt Date: 20241125
  Transmission Date: 20250115
  Serious: Yes (Death)
  Sender: STRIDES
  Company Number: US-STRIDES ARCOLAB LIMITED-2024SP010225

PATIENT

DRUGS (5)
  1. CYCLOSPORINE [Suspect]
     Active Substance: CYCLOSPORINE
     Indication: Stevens-Johnson syndrome
     Dosage: UNK
     Route: 065
  2. VORINOSTAT [Suspect]
     Active Substance: VORINOSTAT
     Indication: Follicular lymphoma
     Dosage: 100 MILLIGRAM, BID ( ON DAYS 1-5 AND 8-12),  THE CYCLE LENGTH WAS 21 DAYS
     Route: 048
  3. VORINOSTAT [Suspect]
     Active Substance: VORINOSTAT
     Dosage: 200 MILLIGRAM, BID ( ON DAYS 1-5 AND 8-12),  THE CYCLE LENGTH WAS 21 DAYS
     Route: 048
  4. PEMBROLIZUMAB [Suspect]
     Active Substance: PEMBROLIZUMAB
     Indication: Follicular lymphoma
     Dosage: 200 MILLIGRAM, CYCLICAL, (ON DAY 1), THE CYCLE LENGTH WAS 21 DAYS.
     Route: 042
  5. INFLIXIMAB [Suspect]
     Active Substance: INFLIXIMAB
     Indication: Stevens-Johnson syndrome
     Dosage: UNK
     Route: 065

REACTIONS (2)
  - Fungal infection [Fatal]
  - Off label use [Unknown]
